FAERS Safety Report 4440894-7 (Version None)
Quarter: 2004Q3

REPORT INFORMATION
  Report Type: 
  Country: None (occurrence: None)
  Receive Date: 20040728
  Receipt Date: 20040423
  Transmission Date: 20050211
  Serious: No
  Sender: FDA-Public Use
  Company Number: USA040465816

PATIENT
  Sex: Female

DRUGS (2)
  1. STRATTERA [Suspect]
     Dosage: 80 MG DAY
     Dates: start: 20030401
  2. ADDERALL 10 [Concomitant]

REACTIONS (3)
  - AGITATION [None]
  - FATIGUE [None]
  - INSOMNIA [None]
